FAERS Safety Report 19062234 (Version 1)
Quarter: 2021Q1

REPORT INFORMATION
  Report Type: Spontaneous
  Country: BR (occurrence: BR)
  Receive Date: 20210326
  Receipt Date: 20210326
  Transmission Date: 20210420
  Serious: Yes (Death, Hospitalization)
  Sender: FDA-Public Use
  Company Number: BR-JNJFOC-20210343917

PATIENT
  Sex: Male

DRUGS (4)
  1. RIVAROXABAN [Suspect]
     Active Substance: RIVAROXABAN
     Indication: COVID-19 PROPHYLAXIS
     Dosage: 20 MG
     Route: 048
  2. AZITROMICINA [AZITHROMYCIN] [Suspect]
     Active Substance: AZITHROMYCIN
     Indication: COVID-19 PROPHYLAXIS
  3. IVERMECTIN. [Suspect]
     Active Substance: IVERMECTIN
     Indication: COVID-19 PROPHYLAXIS
  4. DEXAMETASONA [DEXAMETHASONE] [Suspect]
     Active Substance: DEXAMETHASONE
     Indication: COVID-19 PROPHYLAXIS

REACTIONS (4)
  - Product use in unapproved indication [Unknown]
  - Off label use [Unknown]
  - Haemorrhagic stroke [Fatal]
  - Blood pressure increased [Unknown]
